FAERS Safety Report 8444060-X (Version None)
Quarter: 2012Q2

REPORT INFORMATION
  Report Type: 
  Country: None (occurrence: None)
  Receive Date: 20120618
  Receipt Date: 20120613
  Transmission Date: 20120825
  Serious: Yes (Death, Other)
  Sender: FDA-Public Use
  Company Number: PHHY2012CA035435

PATIENT
  Sex: Female

DRUGS (1)
  1. SANDOSTATIN LAR [Suspect]
     Indication: METASTATIC CARCINOID TUMOUR
     Dosage: 30 MG, ONCE A MONTH
     Route: 030
     Dates: start: 20110711, end: 20120523

REACTIONS (6)
  - DEATH [None]
  - BLOOD GLUCOSE DECREASED [None]
  - FALL [None]
  - FACE INJURY [None]
  - FACIAL BONES FRACTURE [None]
  - CONTUSION [None]
